FAERS Safety Report 24791633 (Version 1)
Quarter: 2024Q4

REPORT INFORMATION
  Report Type: Spontaneous
  Country: US (occurrence: US)
  Receive Date: 20241231
  Receipt Date: 20241231
  Transmission Date: 20250115
  Serious: No
  Sender: GLAXOSMITHKLINE
  Company Number: US-GSK-US2024AMR157735

PATIENT
  Sex: Female

DRUGS (1)
  1. ZEJULA [Suspect]
     Active Substance: NIRAPARIB
     Indication: Ovarian cancer
     Dosage: 300 MG, QD,IN THE MORNING
     Route: 048
     Dates: start: 202409

REACTIONS (3)
  - Nausea [Unknown]
  - Blood magnesium decreased [Unknown]
  - Blood potassium decreased [Unknown]
